FAERS Safety Report 5278246-2 (Version None)
Quarter: 2007Q1

REPORT INFORMATION
  Report Type: 
  Country: None (occurrence: None)
  Receive Date: 20061207
  Receipt Date: 20060126
  Transmission Date: 20070707
  Serious: Yes (Hospitalization)
  Sender: FDA-Public Use
  Company Number: 2006UW01441

PATIENT
  Sex: Female

DRUGS (2)
  1. TOPROL-XL [Suspect]
     Dosage: 50 MG QD PO
     Route: 048
  2. TOPROL-XL [Suspect]
     Dosage: 100 MG PO
     Route: 048
     Dates: start: 19980101

REACTIONS (1)
  - HEART RATE DECREASED [None]
